FAERS Safety Report 8560381 (Version 4)
Quarter: 2014Q2

REPORT INFORMATION
  Report Type: Spontaneous
  Country: CA (occurrence: CA)
  Receive Date: 20120514
  Receipt Date: 20131017
  Transmission Date: 20141212
  Serious: Yes (Other)
  Sender: FDA-Public Use
  Company Number: CA-PFIZER INC-2012039751

PATIENT
  Age: 10 Year
  Sex: Male
  Weight: 44 kg

DRUGS (9)
  1. ZIPRASIDONE HCL [Suspect]
     Indication: PRODUCT USED FOR UNKNOWN INDICATION
     Dosage: UNK
     Route: 065
  2. MORPHINE SULFATE [Suspect]
     Indication: PERIOPERATIVE ANALGESIA
     Dosage: UNK
     Route: 065
  3. METHYLPHENIDATE HYDROCHLORIDE [Suspect]
     Indication: PRODUCT USED FOR UNKNOWN INDICATION
     Dosage: UNK
     Route: 065
  4. FENTANYL [Suspect]
     Indication: PERIOPERATIVE ANALGESIA
     Dosage: UNK
     Route: 065
  5. CODEINE [Suspect]
     Indication: POSTOPERATIVE ANALGESIA
     Dosage: UNK
     Route: 065
  6. FLUVOXAMINE [Concomitant]
     Dosage: UNK
  7. DIVALPROEX [Concomitant]
     Dosage: UNK
  8. PROPOFOL [Concomitant]
     Dosage: UNK
  9. OLANZAPINE [Concomitant]
     Dosage: UNK

REACTIONS (8)
  - Serotonin syndrome [Recovered/Resolved]
  - Tremor [Recovered/Resolved]
  - Blepharospasm [Recovered/Resolved]
  - Amnesia [Recovered/Resolved]
  - Confusional state [Recovered/Resolved]
  - Hyperhidrosis [Recovered/Resolved]
  - Flushing [Recovered/Resolved]
  - Agitation [Recovered/Resolved]
